FAERS Safety Report 7679375-6 (Version None)
Quarter: 2011Q3

REPORT INFORMATION
  Report Type: 
  Country: None (occurrence: None)
  Receive Date: 20110812
  Receipt Date: 20110801
  Transmission Date: 20111222
  Serious: Yes (Hospitalization, Other)
  Sender: FDA-Public Use
  Company Number: US-JNJFOC-20050701341

PATIENT
  Sex: Male
  Weight: 61.4 kg

DRUGS (3)
  1. INFLIXIMAB [Suspect]
     Indication: CROHN'S DISEASE
     Route: 042
     Dates: start: 20060103
  2. MERCAPTOPURINE [Concomitant]
  3. INFLIXIMAB [Suspect]
     Route: 042
     Dates: start: 20050414, end: 20050526

REACTIONS (2)
  - INFUSION RELATED REACTION [None]
  - RASH [None]
